FAERS Safety Report 4532289-2 (Version None)
Quarter: 2004Q4

REPORT INFORMATION
  Report Type: 
  Country: None (occurrence: None)
  Receive Date: 20041217
  Receipt Date: 20041210
  Transmission Date: 20050328
  Serious: Yes (Hospitalization)
  Sender: FDA-Public Use
  Company Number: 200415987BCC

PATIENT
  Age: 18 Year
  Sex: Female
  Weight: 49.8957 kg

DRUGS (1)
  1. ASPIRIN [Suspect]
     Indication: ANALGESIC EFFECT
     Dosage: PRN, ORAL
     Route: 048
     Dates: start: 20020101

REACTIONS (1)
  - COLITIS [None]
